FAERS Safety Report 9547679 (Version 1)
Quarter: 2013Q3

REPORT INFORMATION
  Report Type: Spontaneous
  Country: US (occurrence: None)
  Receive Date: 20130923
  Receipt Date: 20130923
  Transmission Date: 20140515
  Serious: No
  Sender: FDA-Public Use
  Company Number: None

PATIENT
  Age: 50 Year
  Sex: Male
  Weight: 77.11 kg

DRUGS (1)
  1. ZOLOFT [Suspect]
     Indication: DEPRESSION
     Route: 048
     Dates: start: 20041001, end: 20130816

REACTIONS (6)
  - Withdrawal syndrome [None]
  - Drug dose omission [None]
  - Nervous system disorder [None]
  - Shock [None]
  - Chills [None]
  - Loss of consciousness [None]
